FAERS Safety Report 13272880 (Version 1)
Quarter: 2017Q1

REPORT INFORMATION
  Report Type: Spontaneous
  Country: None (occurrence: US)
  Receive Date: 20170224
  Receipt Date: 20170224
  Transmission Date: 20170428
  Serious: No
  Sender: FDA-Public Use
  Company Number: None

PATIENT
  Age: 28 Year
  Sex: Female

DRUGS (1)
  1. GAMMAGARD [Suspect]
     Active Substance: HUMAN IMMUNOGLOBULIN G
     Indication: MYASTHENIA GRAVIS
     Dosage: 30 GRAMS DAILY X2 IV
     Route: 042
     Dates: start: 20161222

REACTIONS (3)
  - Head discomfort [None]
  - Headache [None]
  - Infusion related reaction [None]

NARRATIVE: CASE EVENT DATE: 20161222
